FAERS Safety Report 5059814-X (Version None)
Quarter: 2006Q3

REPORT INFORMATION
  Report Type: 
  Country: None (occurrence: None)
  Receive Date: 20060724
  Receipt Date: 20060710
  Transmission Date: 20061208
  Serious: Yes (Other)
  Sender: FDA-Public Use
  Company Number: US-JNJFOC-20060403304

PATIENT
  Sex: Female

DRUGS (2)
  1. TOPAMAX [Suspect]
     Indication: MIGRAINE PROPHYLAXIS
     Route: 048
  2. WELLBUTRIN [Concomitant]
     Indication: DEPRESSION

REACTIONS (2)
  - ANGLE CLOSURE GLAUCOMA [None]
  - BLINDNESS TRANSIENT [None]
